FAERS Safety Report 21103555 (Version 2)
Quarter: 2022Q3

REPORT INFORMATION
  Report Type: Spontaneous
  Country: US (occurrence: None)
  Receive Date: 20220720
  Receipt Date: 20220909
  Transmission Date: 20221027
  Serious: No
  Sender: FDA-Public Use
  Company Number: US-FARMAPROD-202206-1188

PATIENT
  Sex: Male

DRUGS (1)
  1. OXERVATE [Suspect]
     Active Substance: CENEGERMIN-BKBJ
     Indication: Neurotrophic keratopathy
     Route: 047
     Dates: start: 20220615

REACTIONS (5)
  - Headache [Unknown]
  - Eye irritation [Unknown]
  - Ocular hyperaemia [Unknown]
  - Eye pain [Unknown]
  - Eye inflammation [Unknown]
